FAERS Safety Report 5429246-0 (Version None)
Quarter: 2007Q3

REPORT INFORMATION
  Report Type: 
  Country: None (occurrence: None)
  Receive Date: 20070824
  Receipt Date: 20070820
  Transmission Date: 20080115
  Serious: Yes (Hospitalization)
  Sender: FDA-Public Use
  Company Number: 2007JP003883

PATIENT
  Age: 83 Year
  Sex: Female

DRUGS (3)
  1. VESICARE [Suspect]
     Indication: HYPERTONIC BLADDER
     Dosage: 2. 5 MG, D, ORAL, 5 MG, D, ORAL
     Route: 048
     Dates: start: 20070221, end: 20070306
  2. VESICARE [Suspect]
     Indication: HYPERTONIC BLADDER
     Dosage: 2. 5 MG, D, ORAL, 5 MG, D, ORAL
     Route: 048
     Dates: start: 20070307
  3. MICARDIS [Concomitant]

REACTIONS (1)
  - ATRIOVENTRICULAR BLOCK COMPLETE [None]
